FAERS Safety Report 12560445 (Version 1)
Quarter: 2016Q3

REPORT INFORMATION
  Report Type: Spontaneous
  Country: US (occurrence: US)
  Receive Date: 20160715
  Receipt Date: 20160715
  Transmission Date: 20161109
  Serious: No
  Sender: FDA-Public Use
  Company Number: US-JNJFOC-20160509797

PATIENT
  Sex: Female
  Weight: 56.7 kg

DRUGS (4)
  1. WOMENS ROGAINE [Suspect]
     Active Substance: MINOXIDIL
     Indication: ALOPECIA
     Dosage: ONCE DAILY
     Route: 061
     Dates: start: 201505
  2. WOMENS ROGAINE [Suspect]
     Active Substance: MINOXIDIL
     Route: 061
  3. AMLODIPINE [Concomitant]
     Active Substance: AMLODIPINE BESYLATE
     Indication: HYPERTENSION
     Dosage: DAILY
     Route: 065
     Dates: start: 2000
  4. LEVOTHYROXINE. [Concomitant]
     Active Substance: LEVOTHYROXINE
     Indication: HYPOTHYROIDISM
     Dosage: DAILY
     Route: 065
     Dates: start: 2012

REACTIONS (3)
  - Pruritus [Recovered/Resolved]
  - Off label use [Recovered/Resolved]
  - Product use issue [Recovered/Resolved]
